FAERS Safety Report 9286020 (Version 2)
Quarter: 2013Q2

REPORT INFORMATION
  Report Type: Spontaneous
  Country: CA (occurrence: CA)
  Receive Date: 20130513
  Receipt Date: 20130529
  Transmission Date: 20140414
  Serious: Yes (Other)
  Sender: FDA-Public Use
  Company Number: CA-ASTRAZENECA-2013SE28511

PATIENT
  Age: 17992 Day
  Sex: Female

DRUGS (5)
  1. SYMBICORT TURBUHALER [Suspect]
     Indication: ASTHMA
     Route: 055
     Dates: start: 20050102
  2. SYMBICORT TURBUHALER [Suspect]
     Indication: ASTHMA
     Dosage: 2 PUFFS, TWO TIMES A DAY
     Route: 055
     Dates: start: 20130322, end: 20130421
  3. SYMBICORT TURBUHALER [Suspect]
     Indication: ASTHMA
     Dosage: 200/6 MCG
     Route: 055
     Dates: start: 20130421
  4. NASONEX [Concomitant]
     Indication: ASTHMA
     Dosage: PRN
  5. VENTOLIN MDI [Concomitant]
     Dosage: 2 PUFFS QID PRN

REACTIONS (2)
  - Dyspnoea [Recovered/Resolved]
  - Chest discomfort [Recovered/Resolved]
